FAERS Safety Report 5193210-X (Version None)
Quarter: 2006Q4

REPORT INFORMATION
  Report Type: 
  Country: None (occurrence: None)
  Receive Date: 20061221
  Receipt Date: 20061016
  Transmission Date: 20070319
  Serious: Yes (Death, Life-Threatening)
  Sender: FDA-Public Use
  Company Number: 2006JP001813

PATIENT
  Age: 64 Year
  Sex: Male

DRUGS (12)
  1. TACROLIMUS CAPSULES (TACROLIMUS) CAPSULE [Suspect]
     Indication: RHEUMATOID ARTHRITIS
     Dosage: 2 MG, ORAL; SEE IMAGE
     Route: 048
     Dates: start: 20060302, end: 20060315
  2. TACROLIMUS CAPSULES (TACROLIMUS) CAPSULE [Suspect]
     Indication: RHEUMATOID ARTHRITIS
     Dosage: 2 MG, ORAL; SEE IMAGE
     Route: 048
     Dates: start: 20060316, end: 20060623
  3. PREDNISOLONE [Suspect]
     Indication: RHEUMATOID ARTHRITIS
     Dosage: 12 MG, ORAL
     Route: 048
     Dates: end: 20060620
  4. GASTER [Concomitant]
  5. MOBIC [Concomitant]
  6. NORVASC [Concomitant]
  7. LOXONIN (LOXOPROFEN SODIUM) [Concomitant]
  8. LIPITOR [Concomitant]
  9. OMEPRAZON [Concomitant]
  10. PROMAC (POLAPREZINC) [Concomitant]
  11. MUCOSTA (REBAMIPIDE) [Concomitant]
  12. FOSAMAC (ALENDRONATE SODIUM) [Concomitant]

REACTIONS (15)
  - BACTERIAL INFECTION [None]
  - BLOOD BETA-D-GLUCAN INCREASED [None]
  - CELL MARKER INCREASED [None]
  - CHEST X-RAY ABNORMAL [None]
  - COMPUTERISED TOMOGRAM ABNORMAL [None]
  - COMPUTERISED TOMOGRAM THORAX [None]
  - CONDITION AGGRAVATED [None]
  - CYTOMEGALOVIRUS ANTIGEN POSITIVE [None]
  - INTERSTITIAL LUNG DISEASE [None]
  - LABORATORY TEST ABNORMAL [None]
  - OXYGEN SATURATION DECREASED [None]
  - PNEUMOCYSTIS JIROVECI PNEUMONIA [None]
  - PNEUMONIA CYTOMEGALOVIRAL [None]
  - RESPIRATORY FAILURE [None]
  - WHITE BLOOD CELL COUNT INCREASED [None]
